FAERS Safety Report 9901048 (Version 1)
Quarter: 2014Q1

REPORT INFORMATION
  Report Type: Report from Study
  Country: US (occurrence: US)
  Receive Date: 20140217
  Receipt Date: 20140217
  Transmission Date: 20141002
  Serious: No
  Sender: FDA-Public Use
  Company Number: US-ABBVIE-13P-163-1051476-00

PATIENT
  Sex: Female

DRUGS (3)
  1. SIMCOR 500/20 [Suspect]
     Indication: BLOOD CHOLESTEROL ABNORMAL
  2. ASA [Concomitant]
     Indication: PROPHYLAXIS
     Dosage: 30 MINUTES PRIOR TO SIMCOR
  3. UNKNOWN MEDICATIONS [Concomitant]
     Indication: PRODUCT USED FOR UNKNOWN INDICATION

REACTIONS (1)
  - Pruritus [Not Recovered/Not Resolved]
